FAERS Safety Report 6474747-X (Version None)
Quarter: 2009Q4

REPORT INFORMATION
  Report Type: 
  Country: None (occurrence: None)
  Receive Date: 20091130
  Receipt Date: 20091111
  Transmission Date: 20100525
  Serious: Yes (Other)
  Sender: FDA-Public Use
  Company Number: 2009AP004573

PATIENT
  Age: 54 Year
  Sex: Female

DRUGS (3)
  1. ALENDRONATE SODIUM [Suspect]
     Indication: OSTEOPOROSIS
     Dosage: 70 MG;TAB;PO;QW
     Route: 048
  2. ACETAMINOPHEN [Concomitant]
  3. CLONAZEPAM [Concomitant]

REACTIONS (4)
  - AMNESIA [None]
  - DISSOCIATION [None]
  - FEELING ABNORMAL [None]
  - HYPERSOMNIA [None]
